FAERS Safety Report 8842568 (Version 2)
Quarter: 2015Q3

REPORT INFORMATION
  Report Type: Report from Study
  Country: US (occurrence: US)
  Receive Date: 20121016
  Receipt Date: 20150813
  Transmission Date: 20151125
  Serious: Yes (Other)
  Sender: FDA-Public Use
  Company Number: US-ROCHE-1122205

PATIENT
  Sex: Female
  Weight: 59.52 kg

DRUGS (9)
  1. PROTROPIN [Suspect]
     Active Substance: SOMATREM
     Route: 058
  2. PROTROPIN [Suspect]
     Active Substance: SOMATREM
     Route: 058
  3. PROTROPIN [Suspect]
     Active Substance: SOMATREM
     Route: 058
  4. MACRODANTIN [Concomitant]
     Active Substance: NITROFURANTOIN
  5. CITROLITH [Concomitant]
  6. PROTROPIN [Suspect]
     Active Substance: SOMATREM
     Route: 058
  7. NUTROPIN [Suspect]
     Active Substance: SOMATROPIN
     Indication: DWARFISM
     Route: 058
  8. PROTROPIN [Suspect]
     Active Substance: SOMATREM
     Indication: DWARFISM
     Route: 058
     Dates: start: 19891205
  9. PROTROPIN [Suspect]
     Active Substance: SOMATREM
     Dosage: 0.3 MG/KG/WK
     Route: 058

REACTIONS (10)
  - Increased appetite [Unknown]
  - Scoliosis [Unknown]
  - Peripheral swelling [Recovered/Resolved]
  - Malaise [Unknown]
  - Decubitus ulcer [Unknown]
  - Pyrexia [Unknown]
  - Hip fracture [Unknown]
  - Fall [Unknown]
  - Skin discolouration [Recovered/Resolved]
  - Rhinitis allergic [Unknown]
